FAERS Safety Report 5545763-7 (Version None)
Quarter: 2007Q4

REPORT INFORMATION
  Report Type: 
  Country: None (occurrence: None)
  Receive Date: 20071211
  Receipt Date: 20071126
  Transmission Date: 20080405
  Serious: Yes (Hospitalization)
  Sender: FDA-Public Use
  Company Number: DE-ELI_LILLY_AND_COMPANY-DE200711006511

PATIENT
  Sex: Male
  Weight: 114 kg

DRUGS (6)
  1. HUMULIN N [Suspect]
     Indication: DIABETES MELLITUS
     Dosage: 18-0-0-28 IU, DAILY (1/D)
     Route: 058
     Dates: start: 20060807
  2. HUMULIN N [Suspect]
     Dosage: 48 IU, DAILY (1/D)
  3. *OTHER PHARMA COMPANY INV DRUG [Suspect]
     Indication: DIABETES MELLITUS
     Dosage: 4 MG, DAILY (1/D)
     Route: 055
     Dates: start: 20060901
  4. *OTHER PHARMA COMPANY INV DRUG [Suspect]
     Dosage: 850 MG, 3/D
     Route: 048
     Dates: start: 20000601
  5. PANTOPRAZOLE SODIUM [Concomitant]
     Dosage: 40 MG, DAILY (1/D)
     Route: 048
     Dates: start: 20070508
  6. ALCOHOL [Concomitant]

REACTIONS (2)
  - CEREBRAL PALSY [None]
  - HYPOGLYCAEMIA [None]
